FAERS Safety Report 5467862-0 (Version None)
Quarter: 2007Q3

REPORT INFORMATION
  Report Type: 
  Country: None (occurrence: None)
  Receive Date: 20070926
  Receipt Date: 20070912
  Transmission Date: 20080115
  Serious: Yes (Death)
  Sender: FDA-Public Use
  Company Number: US-JNJFOC-20070903214

PATIENT
  Age: 3 Year
  Sex: Male
  Weight: 15.88 kg

DRUGS (4)
  1. ACETAMINOPHEN [Suspect]
  2. ACETAMINOPHEN [Suspect]
     Indication: DRUG USE FOR UNKNOWN INDICATION
  3. DOXYLAMINE [Suspect]
     Indication: DRUG USE FOR UNKNOWN INDICATION
  4. DEXTROMETHORPHAN HYDROBROMIDE [Concomitant]

REACTIONS (1)
  - DRUG TOXICITY [None]
